FAERS Safety Report 4323029-0 (Version None)
Quarter: 2004Q1

REPORT INFORMATION
  Report Type: 
  Country: None (occurrence: None)
  Receive Date: 20040319
  Receipt Date: 20040309
  Transmission Date: 20041129
  Serious: Yes (Hospitalization)
  Sender: FDA-Public Use
  Company Number: 2004202596US

PATIENT
  Age: 50 Year
  Sex: Male
  Weight: 77.1 kg

DRUGS (13)
  1. CELECOXIB VS PLACEBO(CELECOXIB VS PLACEBO) CAPSULE [Suspect]
     Indication: COLON CANCER METASTATIC
     Dosage: 800 MG, BID, ORAL
     Route: 048
     Dates: start: 20031103
  2. CAMPTOSAR [Suspect]
     Indication: COLON CANCER METASTATIC
     Dosage: 360 MG, Q 2 WEEKS, CYCLE 5, IV
     Route: 042
     Dates: start: 20031103
  3. LEUCOVORIN CALCIUM [Suspect]
     Indication: COLON CANCER METASTATIC
     Dosage: 800 MG, Q 2 WEEKS, CYCLE 9, IV
     Route: 042
     Dates: start: 20031103
  4. FLUOROURACIL(FLUOROURACIL) LIQUID [Suspect]
     Indication: COLON CANCER METASTATIC
     Dosage: 800 MG, Q 2 WEEKS, CYCLE 9, IV
     Route: 042
     Dates: start: 20031103
  5. PRILOSEC [Concomitant]
  6. NEUPOGEN [Concomitant]
  7. PAXIL [Concomitant]
  8. LONOX [Concomitant]
  9. ZOFRAN [Concomitant]
  10. DEXAMETHASONE [Concomitant]
  11. LOVENOX [Concomitant]
  12. M.V.I. (RETINOL, ERGOCALCIFEROL) [Concomitant]
  13. IMODIUM A-D [Concomitant]

REACTIONS (1)
  - WOUND INFECTION STAPHYLOCOCCAL [None]
